FAERS Safety Report 4476746-6 (Version None)
Quarter: 2004Q4

REPORT INFORMATION
  Report Type: 
  Country: None (occurrence: None)
  Receive Date: 20041015
  Receipt Date: 20041015
  Transmission Date: 20050328
  Serious: Yes (Life-Threatening, Hospitalization)
  Sender: FDA-Public Use
  Company Number: None

PATIENT
  Sex: Female
  Weight: 46.1 kg

DRUGS (2)
  1. TEMOZOLOMIDE [Suspect]
     Indication: GLIOBLASTOMA MULTIFORME
     Dosage: 135 MG   EVERY DAY   ORAL
     Route: 048
     Dates: start: 20040825, end: 20040921
  2. NEURONTIN [Concomitant]

REACTIONS (4)
  - BODY TEMPERATURE INCREASED [None]
  - CELLULITIS [None]
  - NEUTROPENIA [None]
  - OTITIS EXTERNA [None]
